FAERS Safety Report 17006716 (Version 7)
Quarter: 2021Q3

REPORT INFORMATION
  Report Type: Report from Study
  Country: JP (occurrence: JP)
  Receive Date: 20191107
  Receipt Date: 20210715
  Transmission Date: 20211014
  Serious: Yes (Hospitalization)
  Sender: FDA-Public Use
  Company Number: JP-JNJFOC-20191108434

PATIENT
  Age: 84 Year
  Sex: Female
  Weight: 60.6 kg

DRUGS (35)
  1. VELCADE [Suspect]
     Active Substance: BORTEZOMIB
     Indication: PLASMA CELL MYELOMA
     Route: 041
     Dates: start: 20180220, end: 20180220
  2. VELCADE [Suspect]
     Active Substance: BORTEZOMIB
     Indication: PLASMA CELL MYELOMA
     Route: 041
     Dates: start: 20180223, end: 20180223
  3. VELCADE [Suspect]
     Active Substance: BORTEZOMIB
     Indication: PLASMA CELL MYELOMA
     Route: 041
     Dates: start: 20180302, end: 20180302
  4. VELCADE [Suspect]
     Active Substance: BORTEZOMIB
     Indication: PLASMA CELL MYELOMA
     Route: 041
     Dates: start: 20180306, end: 20180306
  5. VELCADE [Suspect]
     Active Substance: BORTEZOMIB
     Indication: PLASMA CELL MYELOMA
     Route: 041
     Dates: start: 20180925, end: 20180925
  6. ALDACTONE A [Concomitant]
     Active Substance: SPIRONOLACTONE
     Indication: BRADYCARDIA
     Route: 048
     Dates: start: 20180316, end: 20180801
  7. GASTER [Concomitant]
     Active Substance: FAMOTIDINE
     Dosage: DOES UNKNOWN
     Route: 065
     Dates: start: 20180306, end: 20180306
  8. POLARAMINE [Concomitant]
     Active Substance: DEXCHLORPHENIRAMINE MALEATE
     Dosage: DOSE UNKNOWN
     Route: 065
     Dates: start: 20180306, end: 20180306
  9. SOLITA?T NO.3 [Concomitant]
     Indication: HYPOKALAEMIA
     Route: 065
     Dates: start: 20180315, end: 20180316
  10. DEXAMETHASONE. [Concomitant]
     Active Substance: DEXAMETHASONE
     Indication: PLASMA CELL MYELOMA
     Route: 065
     Dates: start: 20180925, end: 20180925
  11. POLARAMINE [Concomitant]
     Active Substance: DEXCHLORPHENIRAMINE MALEATE
     Dosage: DOSE UNKNOWN
     Route: 065
     Dates: start: 20180918, end: 20180918
  12. DARZALEX [Suspect]
     Active Substance: DARATUMUMAB
     Indication: PLASMA CELL MYELOMA
     Route: 041
     Dates: start: 20180306, end: 20180306
  13. VELCADE [Suspect]
     Active Substance: BORTEZOMIB
     Indication: PLASMA CELL MYELOMA
     Route: 041
     Dates: start: 20180309, end: 20180309
  14. VELCADE [Suspect]
     Active Substance: BORTEZOMIB
     Indication: PLASMA CELL MYELOMA
     Route: 041
     Dates: start: 20180313, end: 20180313
  15. VELCADE [Suspect]
     Active Substance: BORTEZOMIB
     Indication: PLASMA CELL MYELOMA
     Route: 041
     Dates: start: 20180921, end: 20180921
  16. CALONAL [Concomitant]
     Active Substance: ACETAMINOPHEN
     Dosage: DOSE UNKNOWN
     Route: 065
     Dates: start: 20181106, end: 20181106
  17. GASTER [Concomitant]
     Active Substance: FAMOTIDINE
     Dosage: DOES UNKNOWN
     Route: 065
     Dates: start: 20180918, end: 20180918
  18. DEXAMETHASONE. [Concomitant]
     Active Substance: DEXAMETHASONE
     Indication: PLASMA CELL MYELOMA
     Route: 065
     Dates: start: 20180306, end: 20180306
  19. DEXAMETHASONE. [Concomitant]
     Active Substance: DEXAMETHASONE
     Indication: PLASMA CELL MYELOMA
     Route: 065
     Dates: start: 20180313, end: 20180313
  20. POTASSIUM CHLORIDE. [Concomitant]
     Active Substance: POTASSIUM CHLORIDE
     Indication: HYPOKALAEMIA
     Route: 048
     Dates: start: 20180314, end: 20180320
  21. CALONAL [Concomitant]
     Active Substance: ACETAMINOPHEN
     Dosage: DOSE UNKNOWN
     Route: 065
     Dates: start: 20180918, end: 20180918
  22. SOLU?MEDROL [Concomitant]
     Active Substance: METHYLPREDNISOLONE SODIUM SUCCINATE
     Indication: CHILLS
     Route: 065
     Dates: start: 20180306, end: 20180306
  23. BFLUID [Concomitant]
     Active Substance: AMINO ACIDS\DEXTROSE\ELECTROLYTES NOS\VITAMINS
     Indication: HYPOKALAEMIA
     Route: 041
     Dates: start: 20180314, end: 20180315
  24. VELCADE [Suspect]
     Active Substance: BORTEZOMIB
     Indication: PLASMA CELL MYELOMA
     Route: 041
     Dates: start: 20180928, end: 20180928
  25. CALONAL [Concomitant]
     Active Substance: ACETAMINOPHEN
     Dosage: DOSE UNKNOWN
     Route: 065
     Dates: start: 20180306, end: 20180306
  26. VELCADE [Suspect]
     Active Substance: BORTEZOMIB
     Indication: PLASMA CELL MYELOMA
     Route: 041
     Dates: start: 20180227, end: 20180227
  27. VELCADE [Suspect]
     Active Substance: BORTEZOMIB
     Indication: PLASMA CELL MYELOMA
     Route: 041
     Dates: start: 20180918, end: 20180918
  28. DEXAMETHASONE. [Concomitant]
     Active Substance: DEXAMETHASONE
     Indication: PLASMA CELL MYELOMA
     Route: 065
     Dates: start: 20181002, end: 20181002
  29. FUROSEMIDE. [Concomitant]
     Active Substance: FUROSEMIDE
     Indication: BRADYCARDIA
     Route: 065
     Dates: start: 20180320, end: 20190722
  30. POLARAMINE [Concomitant]
     Active Substance: DEXCHLORPHENIRAMINE MALEATE
     Dosage: DOSE UNKNOWN
     Route: 065
     Dates: start: 20181106, end: 20181106
  31. DARZALEX [Suspect]
     Active Substance: DARATUMUMAB
     Route: 041
     Dates: start: 20180313, end: 20180313
  32. DEXAMETHASONE. [Concomitant]
     Active Substance: DEXAMETHASONE
     Indication: PLASMA CELL MYELOMA
     Route: 065
     Dates: start: 20180918, end: 20180918
  33. POMALYST [Concomitant]
     Active Substance: POMALIDOMIDE
     Indication: PLASMA CELL MYELOMA
     Dosage: DOSE UNKNOWN
     Route: 048
     Dates: start: 20180702, end: 20180715
  34. POTASSIUM CHLORIDE. [Concomitant]
     Active Substance: POTASSIUM CHLORIDE
     Indication: HYPOKALAEMIA
     Dosage: 20MEQ KIT
     Route: 042
     Dates: start: 20180314, end: 20180317
  35. GASTER [Concomitant]
     Active Substance: FAMOTIDINE
     Dosage: DOES UNKNOWN
     Route: 065
     Dates: start: 20181106, end: 20181106

REACTIONS (6)
  - Bradycardia [Recovered/Resolved with Sequelae]
  - Hypokalaemia [Recovered/Resolved]
  - Chills [Recovered/Resolved]
  - Diarrhoea [Recovered/Resolved]
  - Infusion related reaction [Recovered/Resolved]
  - Hypoaesthesia [Recovering/Resolving]

NARRATIVE: CASE EVENT DATE: 20180306
